FAERS Safety Report 7751491-X (Version None)
Quarter: 2011Q3

REPORT INFORMATION
  Report Type: 
  Country: None (occurrence: None)
  Receive Date: 20110914
  Receipt Date: 20110831
  Transmission Date: 20111222
  Serious: Yes (Other)
  Sender: FDA-Public Use
  Company Number: PHHY2011BR49529

PATIENT
  Sex: Female

DRUGS (4)
  1. HYDROCHLOROTHIAZIDE [Concomitant]
     Dosage: 1 DF, DAILY
     Route: 048
  2. CLONIDINE HYDROCHLORIDE [Concomitant]
     Indication: HYPERTENSION
     Dosage: 6 DF, DAILY
     Route: 048
  3. EXFORGE [Suspect]
     Indication: HYPERTENSION
     Dosage: 1 DF, DAILY
     Dates: start: 20080901
  4. ANASTROZOLE [Concomitant]
     Indication: HORMONE LEVEL ABNORMAL
     Dosage: 1 DF, DAILY
     Route: 048
     Dates: start: 20101001

REACTIONS (4)
  - BLOOD PRESSURE DECREASED [None]
  - OEDEMA PERIPHERAL [None]
  - BREAST CANCER [None]
  - BREAST MASS [None]
